FAERS Safety Report 9297179 (Version 1)
Quarter: 2013Q2

REPORT INFORMATION
  Report Type: Spontaneous
  Country: CH (occurrence: CH)
  Receive Date: 20130520
  Receipt Date: 20130520
  Transmission Date: 20140414
  Serious: Yes (Other)
  Sender: FDA-Public Use
  Company Number: CH-ROCHE-1225388

PATIENT
  Age: 4 Year
  Sex: Male
  Weight: 15 kg

DRUGS (7)
  1. RIVOTRIL [Suspect]
     Indication: PAIN
     Route: 048
     Dates: start: 20130329, end: 20130418
  2. DAFALGAN [Suspect]
     Indication: PAIN
     Route: 048
     Dates: start: 20130320, end: 20130418
  3. GABAPENTIN [Suspect]
     Indication: PAIN
     Route: 048
     Dates: start: 20130320
  4. GABAPENTIN [Suspect]
     Route: 048
     Dates: start: 20130405
  5. CIRCADIN [Suspect]
     Indication: SLEEP DISORDER
     Route: 048
     Dates: start: 20130301
  6. PRIVIGEN [Suspect]
     Indication: IDIOPATHIC THROMBOCYTOPENIC PURPURA
     Route: 041
     Dates: start: 20130208, end: 20130209
  7. PRIVIGEN [Suspect]
     Indication: GUILLAIN-BARRE SYNDROME
     Route: 041
     Dates: start: 20130313, end: 20130317

REACTIONS (2)
  - Hepatocellular injury [Not Recovered/Not Resolved]
  - Neutropenia [Not Recovered/Not Resolved]
